FAERS Safety Report 15826096 (Version 1)
Quarter: 2019Q1

REPORT INFORMATION
  Report Type: Spontaneous
  Country: US (occurrence: US)
  Receive Date: 20190115
  Receipt Date: 20190115
  Transmission Date: 20190417
  Serious: Yes (Other)
  Sender: FDA-Public Use
  Company Number: None

PATIENT
  Age: 73 Year
  Sex: Male
  Weight: 112.5 kg

DRUGS (1)
  1. LACTIC ACID AND AMMONIUM HYDROXIDE CREAM [Suspect]
     Active Substance: AMMONIUM LACTATE
     Route: 061

REACTIONS (4)
  - Skin swelling [None]
  - Rash erythematous [None]
  - Rash vesicular [None]
  - Chemical burn [None]
